FAERS Safety Report 4998533-2 (Version None)
Quarter: 2006Q2

REPORT INFORMATION
  Report Type: 
  Country: None (occurrence: None)
  Receive Date: 20060508
  Receipt Date: 20060424
  Transmission Date: 20061013
  Serious: Yes (Other)
  Sender: FDA-Public Use
  Company Number: 006#1#2006-00024

PATIENT
  Age: 54 Year
  Sex: Male

DRUGS (9)
  1. EDEX [Suspect]
     Indication: ERECTILE DYSFUNCTION
     Dosage: INTRACAVERNOUS
     Route: 017
     Dates: start: 20051021, end: 20051121
  2. PRAZEPAM [Concomitant]
  3. PROZAC [Concomitant]
  4. NOZINAN (LEVOMEPROMAZINE MALEATE) [Concomitant]
  5. LANSOPRAZOLE [Concomitant]
  6. CLONAZEPAM [Concomitant]
  7. IMOVANE (ZOPICLONE) [Concomitant]
  8. CYANOCOBALAMIN [Concomitant]
  9. SPECIAFOLDINE (FOLIC ACID) [Concomitant]

REACTIONS (6)
  - DRUG INEFFECTIVE [None]
  - DYSURIA [None]
  - ENURESIS [None]
  - PHIMOSIS [None]
  - POLLAKIURIA [None]
  - URINARY INCONTINENCE [None]
